FAERS Safety Report 4572085-3 (Version None)
Quarter: 2005Q1

REPORT INFORMATION
  Report Type: 
  Country: None (occurrence: None)
  Receive Date: 20050202
  Receipt Date: 20050120
  Transmission Date: 20050727
  Serious: Yes (Other)
  Sender: FDA-Public Use
  Company Number: 7678

PATIENT
  Age: 59 Year
  Sex: Male

DRUGS (2)
  1. SEPTOCAINE [Suspect]
     Indication: DENTAL OPERATION
     Dosage: 1 CARPULE INJECTED
  2. SEPTOCAINE [Suspect]
     Indication: LOCAL ANAESTHESIA
     Dosage: 1 CARPULE INJECTED

REACTIONS (1)
  - PARAESTHESIA ORAL [None]
